FAERS Safety Report 13284212 (Version 15)
Quarter: 2018Q2

REPORT INFORMATION
  Report Type: Report from Study
  Country: CA (occurrence: CA)
  Receive Date: 20170301
  Receipt Date: 20180611
  Transmission Date: 20180711
  Serious: Yes (Hospitalization, Other)
  Sender: FDA-Public Use
  Company Number: CA-TAKEDA-2016TUS020647

PATIENT
  Age: 63 Year
  Sex: Female

DRUGS (8)
  1. CORTISONE [Suspect]
     Active Substance: CORTISONE\HYDROCORTISONE
     Indication: PREMEDICATION
     Dosage: UNK
     Route: 065
  2. CANDESARTAN. [Concomitant]
     Active Substance: CANDESARTAN
     Dosage: 8 MG, QD
  3. VITAMIN D [Concomitant]
     Active Substance: CHOLECALCIFEROL
     Dosage: 10000 IU, 1/WEEK
  4. VEDOLIZUMAB [Suspect]
     Active Substance: VEDOLIZUMAB
     Indication: CROHN^S DISEASE
     Dosage: 300 MG, UNK
     Route: 042
     Dates: start: 20161110
  5. DEXILANT [Suspect]
     Active Substance: DEXLANSOPRAZOLE
     Indication: PRODUCT USED FOR UNKNOWN INDICATION
     Dosage: 60 MG, QD
     Route: 065
  6. CALCIUM [Concomitant]
     Active Substance: CALCIUM
     Dosage: 2000 MG, 1/WEEK
  7. CITOPRAM [Concomitant]
     Dosage: 40 MG, QD
  8. SYNTHROID [Concomitant]
     Active Substance: LEVOTHYROXINE SODIUM
     Dosage: 0.088 MG, QD

REACTIONS (29)
  - Dry mouth [Recovered/Resolved]
  - Diarrhoea [Unknown]
  - Throat irritation [Not Recovered/Not Resolved]
  - Pneumonia [Not Recovered/Not Resolved]
  - Lupus-like syndrome [Unknown]
  - Blood pressure increased [Not Recovered/Not Resolved]
  - Dyspnoea [Unknown]
  - Breath sounds [Unknown]
  - Ecchymosis [Not Recovered/Not Resolved]
  - Joint swelling [Unknown]
  - Acne [Not Recovered/Not Resolved]
  - Arthralgia [Unknown]
  - Fatigue [Unknown]
  - Disturbance in attention [Unknown]
  - Insomnia [Unknown]
  - Pruritus [Recovered/Resolved]
  - Erythema [Unknown]
  - Amnesia [Not Recovered/Not Resolved]
  - Swelling [Unknown]
  - Cough [Recovered/Resolved]
  - Influenza [Unknown]
  - Blood pressure fluctuation [Unknown]
  - Dry skin [Unknown]
  - Grip strength decreased [Unknown]
  - Dyscalculia [Not Recovered/Not Resolved]
  - Skin warm [Unknown]
  - Chills [Recovered/Resolved]
  - Frequent bowel movements [Unknown]
  - Abdominal pain upper [Unknown]

NARRATIVE: CASE EVENT DATE: 2016
